FAERS Safety Report 9773418 (Version 1)
Quarter: 2013Q4

REPORT INFORMATION
  Report Type: Report from Study
  Country: US (occurrence: US)
  Receive Date: 20131219
  Receipt Date: 20131219
  Transmission Date: 20140711
  Serious: Yes (Other)
  Sender: FDA-Public Use
  Company Number: US-ABBVIE-13P-163-1179676-00

PATIENT
  Age: 53 Year
  Sex: Female
  Weight: 97.61 kg

DRUGS (13)
  1. HUMIRA [Suspect]
     Indication: RHEUMATOID ARTHRITIS
     Route: 058
     Dates: start: 2010, end: 201308
  2. HUMIRA [Suspect]
     Route: 058
     Dates: start: 201310
  3. SYNTHROID [Concomitant]
     Indication: PRODUCT USED FOR UNKNOWN INDICATION
  4. PLAQUINEL [Concomitant]
     Indication: PRODUCT USED FOR UNKNOWN INDICATION
  5. CALCIUM [Concomitant]
     Indication: PRODUCT USED FOR UNKNOWN INDICATION
  6. AMBIEN [Concomitant]
     Indication: PRODUCT USED FOR UNKNOWN INDICATION
  7. NEURONTIN [Concomitant]
     Indication: PRODUCT USED FOR UNKNOWN INDICATION
  8. TRAMADOL [Concomitant]
     Indication: PRODUCT USED FOR UNKNOWN INDICATION
  9. VITAMIN D [Concomitant]
     Indication: PRODUCT USED FOR UNKNOWN INDICATION
  10. HYDORCODONE [Concomitant]
     Indication: PRODUCT USED FOR UNKNOWN INDICATION
  11. RIXICET [Concomitant]
     Indication: PRODUCT USED FOR UNKNOWN INDICATION
  12. FLUTICASON-PROPIONATE [Concomitant]
     Indication: PRODUCT USED FOR UNKNOWN INDICATION
  13. PRO-BIOTICS [Concomitant]
     Indication: PRODUCT USED FOR UNKNOWN INDICATION

REACTIONS (4)
  - Rotator cuff syndrome [Recovering/Resolving]
  - Joint swelling [Recovering/Resolving]
  - Arthralgia [Recovering/Resolving]
  - Nasopharyngitis [Unknown]
